FAERS Safety Report 14232735 (Version 3)
Quarter: 2018Q1

REPORT INFORMATION
  Report Type: Spontaneous
  Country: US (occurrence: US)
  Receive Date: 20171128
  Receipt Date: 20180207
  Transmission Date: 20180508
  Serious: Yes (Life-Threatening, Other)
  Sender: FDA-Public Use
  Company Number: US-009507513-1711USA009420

PATIENT
  Age: 75 Year
  Sex: Female

DRUGS (2)
  1. TICE BCG [Suspect]
     Active Substance: BACILLUS CALMETTE-GUERIN SUBSTRAIN TICE LIVE ANTIGEN
     Indication: BLADDER CANCER
     Dosage: 50 MG, ONCE WEEKLY
     Route: 043
     Dates: start: 20171007, end: 20171031
  2. TICE BCG [Suspect]
     Active Substance: BACILLUS CALMETTE-GUERIN SUBSTRAIN TICE LIVE ANTIGEN
     Dosage: ONE THIRD OF HER NORMAL DOSE
     Dates: start: 20171107

REACTIONS (4)
  - Pyrexia [Recovered/Resolved]
  - Haematuria [Recovered/Resolved]
  - Thrombosis [Recovered/Resolved]
  - Chills [Recovered/Resolved]

NARRATIVE: CASE EVENT DATE: 20171007
